FAERS Safety Report 19938539 (Version 1)
Quarter: 2021Q4

REPORT INFORMATION
  Report Type: Spontaneous
  Country: US (occurrence: US)
  Receive Date: 20211011
  Receipt Date: 20211011
  Transmission Date: 20220304
  Serious: Yes (Hospitalization, Other)
  Sender: FDA-Public Use
  Company Number: US-AMGEN-USASP2021152922

PATIENT
  Age: 52 Year
  Sex: Male

DRUGS (13)
  1. CARFILZOMIB [Suspect]
     Active Substance: CARFILZOMIB
     Indication: Plasma cell myeloma
     Dosage: UNK
     Route: 065
  2. BORTEZOMIB [Concomitant]
     Active Substance: BORTEZOMIB
     Indication: Plasma cell myeloma
     Dosage: UNK
  3. CYCLOPHOSPHAMIDE [Concomitant]
     Active Substance: CYCLOPHOSPHAMIDE
     Indication: Plasma cell myeloma
     Dosage: UNK
  4. PANOBINOSTAT [Concomitant]
     Active Substance: PANOBINOSTAT
     Indication: Plasma cell myeloma
     Dosage: UNK
  5. DARATUMUMAB [Concomitant]
     Active Substance: DARATUMUMAB
     Indication: Plasma cell myeloma
     Dosage: UNK
  6. LENALIDOMIDE [Concomitant]
     Active Substance: LENALIDOMIDE
     Indication: Plasma cell myeloma
     Dosage: UNK
  7. DEXAMETHASONE [Concomitant]
     Active Substance: DEXAMETHASONE
     Dosage: UNK
  8. INSULIN GLARGINE [Concomitant]
     Active Substance: INSULIN GLARGINE
     Dosage: UNK
  9. INSULIN NOS [Concomitant]
     Active Substance: INSULIN NOS
     Dosage: UNK
  10. HYDROMORPHONE [Concomitant]
     Active Substance: HYDROMORPHONE
     Dosage: UNK
  11. POLYETHYLENE GLYCOL 3350 [Concomitant]
     Active Substance: POLYETHYLENE GLYCOL 3350
     Dosage: UNK
  12. METHYLNALTREXONE [Concomitant]
     Active Substance: METHYLNALTREXONE
     Dosage: UNK
  13. ONDANSETRON [Concomitant]
     Active Substance: ONDANSETRON
     Dosage: UNK

REACTIONS (32)
  - Trismus [Unknown]
  - Pain in jaw [Unknown]
  - Swelling [Unknown]
  - Diabetic ketoacidosis [Unknown]
  - Infection [Unknown]
  - Osteitis [Unknown]
  - Adrenal insufficiency [Unknown]
  - Hypophagia [Unknown]
  - Tooth extraction [Unknown]
  - Oral disorder [Unknown]
  - Mastication disorder [Unknown]
  - Face oedema [Unknown]
  - Decubitus ulcer [Unknown]
  - Muscle atrophy [Unknown]
  - Malnutrition [Unknown]
  - Electrolyte imbalance [Unknown]
  - Adrenal insufficiency [Unknown]
  - Mouth swelling [Unknown]
  - Refeeding syndrome [Unknown]
  - Blood thyroid stimulating hormone increased [Unknown]
  - Tri-iodothyronine decreased [Unknown]
  - Thyroxine decreased [Unknown]
  - Pulseless electrical activity [Unknown]
  - Plasma cell myeloma [Unknown]
  - Blood phosphorus decreased [Unknown]
  - Blood potassium decreased [Unknown]
  - Decreased appetite [Unknown]
  - Oedema peripheral [Unknown]
  - Hyponatraemia [Unknown]
  - Hypotension [Unknown]
  - Sepsis [Unknown]
  - Fatigue [Unknown]
